FAERS Safety Report 7374577-0 (Version None)
Quarter: 2011Q1

REPORT INFORMATION
  Report Type: 
  Country: None (occurrence: None)
  Receive Date: 20110325
  Receipt Date: 20100329
  Transmission Date: 20110831
  Serious: No
  Sender: FDA-Public Use
  Company Number: US-MYLANLABS-2010S1005524

PATIENT
  Age: 48 Year
  Sex: Female
  Weight: 47.63 kg

DRUGS (4)
  1. CELEXA [Concomitant]
  2. KLONOPIN [Concomitant]
  3. FENTANYL-100 [Suspect]
     Indication: FIBROMYALGIA
     Dosage: Q 72 HOURS
     Route: 062
     Dates: start: 20050101
  4. VICODIN [Concomitant]

REACTIONS (3)
  - DRUG WITHDRAWAL SYNDROME [None]
  - DRUG EFFECT DECREASED [None]
  - PAIN [None]
